FAERS Safety Report 9528480 (Version 2)
Quarter: 2013Q3

REPORT INFORMATION
  Report Type: Report from Study
  Country: US (occurrence: US)
  Receive Date: 20130917
  Receipt Date: 20130917
  Transmission Date: 20140515
  Serious: Yes (Disabling)
  Sender: FDA-Public Use
  Company Number: US-JNJFOC-20130804649

PATIENT
  Age: 78 Year
  Sex: Male

DRUGS (2)
  1. SIMPONI [Suspect]
     Indication: RHEUMATOID ARTHRITIS
     Route: 058
     Dates: start: 20130614
  2. METHOTREXATE [Concomitant]
     Indication: RHEUMATOID ARTHRITIS
     Dosage: 25 MG INJ 6 MG
     Route: 065

REACTIONS (4)
  - Dyspnoea [Recovered/Resolved]
  - Wrong drug administered [Unknown]
  - Dizziness [Recovered/Resolved]
  - Nervousness [Recovered/Resolved]
